FAERS Safety Report 6254537-3 (Version None)
Quarter: 2009Q3

REPORT INFORMATION
  Report Type: 
  Country: None (occurrence: None)
  Receive Date: 20090702
  Receipt Date: 20090619
  Transmission Date: 20100115
  Serious: Yes (Other)
  Sender: FDA-Public Use
  Company Number: JP-PFIZER INC-2009196520

PATIENT
  Age: 54 Year

DRUGS (5)
  1. CAMPTOSAR [Suspect]
     Indication: RECTAL CANCER
     Dosage: 231 MG
     Route: 041
     Dates: start: 20090218, end: 20090218
  2. FLUOROURACIL [Suspect]
     Indication: RECTAL CANCER
     Dosage: 616 MG
     Route: 040
     Dates: start: 20090218, end: 20090401
  3. FLUOROURACIL [Suspect]
     Dosage: 3696 MG
     Route: 041
     Dates: start: 20090218, end: 20090401
  4. CALCIUM LEVOFOLINATE [Concomitant]
     Indication: RECTAL CANCER
     Dosage: 308 MG
     Route: 041
     Dates: start: 20090218, end: 20090401
  5. AVASTIN [Concomitant]
     Indication: RECTAL CANCER
     Route: 041
     Dates: start: 20090318, end: 20090401

REACTIONS (1)
  - NEUROPATHY PERIPHERAL [None]
